FAERS Safety Report 12116043 (Version 1)
Quarter: 2016Q1

REPORT INFORMATION
  Report Type: Spontaneous
  Country: US (occurrence: US)
  Receive Date: 20160225
  Receipt Date: 20160225
  Transmission Date: 20160526
  Serious: No
  Sender: FDA-Public Use
  Company Number: US-LANTHEUS-LMI-2015-00356

PATIENT
  Age: 41 Year
  Sex: Male

DRUGS (1)
  1. DEFINITY [Suspect]
     Active Substance: PERFLUTREN
     Indication: ECHOCARDIOGRAM
     Dosage: 1.3 ML DEFINITY DILUTED IN 8.7 ML UNKNOWN DILUENT
     Route: 040
     Dates: start: 20150629, end: 20150629

REACTIONS (1)
  - Heart sounds abnormal [Not Recovered/Not Resolved]

NARRATIVE: CASE EVENT DATE: 20150629
